FAERS Safety Report 10039407 (Version 1)
Quarter: 2014Q1

REPORT INFORMATION
  Report Type: Spontaneous
  Country: GB (occurrence: GB)
  Receive Date: 20140326
  Receipt Date: 20140326
  Transmission Date: 20141002
  Serious: Yes (Hospitalization, Disabling, Other)
  Sender: FDA-Public Use
  Company Number: PHHY2014GB031520

PATIENT
  Age: 84 Year
  Sex: Female

DRUGS (12)
  1. ATORVASTATIN [Suspect]
     Indication: ARTERIAL STENT INSERTION
     Route: 048
     Dates: start: 20131028, end: 201312
  2. BISOPROLOL [Concomitant]
     Dosage: 3.75 MG, UNK
  3. CODEINE [Concomitant]
  4. ASPIRIN [Concomitant]
     Dosage: 75 MG, UNK
  5. FELODIPINE [Concomitant]
     Dosage: 2.5 MG, UNK
  6. FUROSEMIDE [Concomitant]
     Dosage: 40 MG, UNK
  7. ISOSORBIDE [Concomitant]
     Dosage: 30 MG, QD
  8. LATANOPROST [Concomitant]
  9. OMEPRAZOLE [Concomitant]
     Dosage: 20 MG, UNK
  10. PARACETAMOL [Concomitant]
  11. PERINDOPRIL [Concomitant]
     Dosage: 8 MG, UNK
  12. TICAGRELOR [Concomitant]
     Dosage: 90 MG, UNK

REACTIONS (8)
  - Visual acuity reduced [Not Recovered/Not Resolved]
  - Pain [Unknown]
  - Renal failure [Unknown]
  - Paralysis [Unknown]
  - Rhabdomyolysis [Recovered/Resolved with Sequelae]
  - Hepatic function abnormal [Recovered/Resolved with Sequelae]
  - Hypoaesthesia [Unknown]
  - Hepatic failure [Unknown]
